FAERS Safety Report 8402017-9 (Version None)
Quarter: 2012Q2

REPORT INFORMATION
  Report Type: 
  Country: None (occurrence: None)
  Receive Date: 20120529
  Receipt Date: 20020430
  Transmission Date: 20120825
  Serious: Yes (Hospitalization)
  Sender: FDA-Public Use
  Company Number: 02100-JPN-02-0028

PATIENT
  Age: 95 Year
  Sex: Female
  Weight: 45 kg

DRUGS (7)
  1. PLETAL [Suspect]
     Dosage: 100 MG, BID, ORAL
     Route: 048
     Dates: start: 20011124, end: 20011129
  2. PLETAL [Suspect]
     Dosage: 100 MG, BID, ORAL
     Route: 048
     Dates: start: 20010518, end: 20011115
  3. FAMOTIDINE [Suspect]
     Dosage: 20 MG, BID, ORAL
     Route: 048
     Dates: start: 20011124, end: 20011129
  4. FAMOTIDINE [Suspect]
     Dosage: 20 MG, BID, ORAL
     Route: 048
     Dates: start: 20010518, end: 20011115
  5. ISOSORBIDE DINITRATE [Concomitant]
  6. ANPLAG (SARPOGRELATE HYDROCHLORIDE) TABLET,100MG [Suspect]
     Dosage: 100 MG, TID, ORAL
     Route: 048
     Dates: start: 20010518, end: 20011115
  7. ANPLAG (SARPOGRELATE HYDROCHLORIDE) TABLET,100MG [Suspect]
     Dosage: 100 MG, TID, ORAL
     Route: 048
     Dates: start: 20011124, end: 20011129

REACTIONS (5)
  - HEPATIC FUNCTION ABNORMAL [None]
  - ALANINE AMINOTRANSFERASE INCREASED [None]
  - HEPATIC CYST [None]
  - CHOLELITHIASIS [None]
  - ASPARTATE AMINOTRANSFERASE INCREASED [None]
